FAERS Safety Report 6015163-4 (Version None)
Quarter: 2008Q4

REPORT INFORMATION
  Report Type: 
  Country: None (occurrence: None)
  Receive Date: 20081218
  Receipt Date: 20081215
  Transmission Date: 20090506
  Serious: No
  Sender: FDA-Public Use
  Company Number: B0550447A

PATIENT
  Age: 59 Year
  Sex: Female

DRUGS (2)
  1. CHLORPROMAZINE HCL INJECTION (GENERIC) (CHLORPROMAZINE HCL) [Suspect]
     Indication: EYE PAIN
     Dosage: 25 MG /
  2. ETHANOL (FORMULATION UNKNOWN) (ALCOHOL) [Suspect]
     Dosage: 100 PERCENT /

REACTIONS (9)
  - BLINDNESS UNILATERAL [None]
  - CONJUNCTIVAL OEDEMA [None]
  - EXOPHTHALMOS [None]
  - EYE INFLAMMATION [None]
  - EYE MOVEMENT DISORDER [None]
  - FIBROSIS [None]
  - INFLAMMATION [None]
  - MELANOMA RECURRENT [None]
  - SWELLING FACE [None]
